FAERS Safety Report 4478876-1 (Version None)
Quarter: 2004Q4

REPORT INFORMATION
  Report Type: 
  Country: None (occurrence: None)
  Receive Date: 20041014
  Receipt Date: 20040928
  Transmission Date: 20050328
  Serious: Yes (Other)
  Sender: FDA-Public Use
  Company Number: 2004235875TR

PATIENT
  Age: 24 Year
  Sex: Female

DRUGS (1)
  1. DEPO-MEDROL [Suspect]
     Indication: LUPUS NEPHRITIS
     Dosage: 60 MG, QD, IV
     Route: 042

REACTIONS (1)
  - BRADYCARDIA [None]
